FAERS Safety Report 4908865-1 (Version None)
Quarter: 2006Q1

REPORT INFORMATION
  Report Type: 
  Country: None (occurrence: None)
  Receive Date: 20060210
  Receipt Date: 20051209
  Transmission Date: 20060701
  Serious: No
  Sender: FDA-Public Use
  Company Number: US-GLAXOSMITHKLINE-A0585243A

PATIENT
  Sex: Female

DRUGS (4)
  1. PAXIL CR [Suspect]
     Dosage: 37.5MG PER DAY
     Route: 048
  2. XANAX [Concomitant]
  3. M.V.I. [Concomitant]
  4. CALCIUM GLUCONATE [Concomitant]

REACTIONS (2)
  - CONSTIPATION [None]
  - NAUSEA [None]
